FAERS Safety Report 8912726 (Version 1)
Quarter: 2012Q4

REPORT INFORMATION
  Report Type: 
  Country: FR (occurrence: FR)
  Receive Date: 20121115
  Receipt Date: 20121115
  Transmission Date: 20130627
  Serious: Yes (Hospitalization)
  Sender: FDA-Public Use
  Company Number: FR-BAXTER-2012BAX023072

PATIENT
  Age: 11 Year
  Sex: Female

DRUGS (13)
  1. ENDOXAN 2000 MG, LYOPHILISAT POUR SOLUTION INJECTABLE [Suspect]
     Indication: ACUTE LYMPHOID LEUKEMIA
     Route: 042
     Dates: start: 20120907, end: 20120909
  2. EVOLTRA [Suspect]
     Indication: ACUTE LYMPHOID LEUKEMIA
     Route: 042
     Dates: start: 20120907, end: 20120911
  3. ARACYTINE [Suspect]
     Indication: ACUTE LYMPHOID LEUKEMIA
     Route: 037
     Dates: start: 20120905
  4. ETOPOPHOS [Suspect]
     Indication: ACUTE LYMPHOID LEUKEMIA
     Route: 042
     Dates: start: 20120907, end: 20120909
  5. HYDROCORTISONE [Suspect]
     Indication: ACUTE LYMPHOID LEUKEMIA
     Route: 037
     Dates: start: 20120905, end: 20120905
  6. ZOPHREN [Suspect]
     Indication: ANTIEMETIC SUPPORTIVE CARE
     Route: 048
     Dates: start: 20120908
  7. ZOPHREN [Suspect]
     Route: 048
     Dates: start: 20120926, end: 20120930
  8. ZOPHREN [Suspect]
     Route: 048
     Dates: start: 20121005
  9. PLITICAN [Suspect]
     Indication: DRUG USE FOR UNKNOWN INDICATION
     Route: 042
     Dates: start: 20120907, end: 20120911
  10. DEXAMETHASONE [Suspect]
     Indication: DRUG USE FOR UNKNOWN INDICATION
     Route: 042
     Dates: start: 20120907, end: 20120911
  11. PIPERACILLINE/TAZOBACTAM [Suspect]
     Indication: DRUG USE FOR UNKNOWN INDICATION
     Route: 042
     Dates: start: 20120919, end: 20120921
  12. GENTAMICINE [Suspect]
     Indication: DRUG USE FOR UNKNOWN INDICATION
     Route: 042
     Dates: start: 20120919, end: 20120921
  13. PARACETAMOL [Suspect]
     Indication: DRUG USE FOR UNKNOWN INDICATION
     Route: 048

REACTIONS (19)
  - Capillary leak syndrome [Recovered/Resolved]
  - Pericardial effusion [Recovered/Resolved]
  - Pleural effusion [Recovered/Resolved]
  - Face oedema [Recovered/Resolved]
  - Febrile bone marrow aplasia [Unknown]
  - Fluid retention [None]
  - Tachypnoea [None]
  - Dyspnoea [None]
  - Oedema peripheral [None]
  - Diarrhoea [None]
  - Abdominal pain [None]
  - Lung infection [None]
  - Inflammation [None]
  - Escherichia test positive [None]
  - Pleurisy [None]
  - Pancytopenia [None]
  - Ascites [None]
  - Ileitis [None]
  - Liver disorder [None]
